FAERS Safety Report 6020879-X (Version None)
Quarter: 2008Q4

REPORT INFORMATION
  Report Type: 
  Country: None (occurrence: None)
  Receive Date: 20081229
  Receipt Date: 20081219
  Transmission Date: 20090506
  Serious: Yes (Hospitalization)
  Sender: FDA-Public Use
  Company Number: JP-BAYER-200812392BYL

PATIENT
  Age: 59 Year
  Sex: Female
  Weight: 48 kg

DRUGS (2)
  1. NEXAVAR [Suspect]
     Indication: RENAL CELL CARCINOMA
     Route: 048
     Dates: start: 20080829, end: 20080831
  2. NEXAVAR [Suspect]
     Dosage: TOTAL DAILY DOSE: 800 MG  UNIT DOSE: 200 MG
     Route: 048
     Dates: start: 20080901, end: 20080910

REACTIONS (3)
  - HYPERTENSION [None]
  - PALMAR-PLANTAR ERYTHRODYSAESTHESIA SYNDROME [None]
  - PSYCHIATRIC SYMPTOM [None]
